FAERS Safety Report 6190708-2 (Version None)
Quarter: 2009Q2

REPORT INFORMATION
  Report Type: 
  Country: None (occurrence: None)
  Receive Date: 20090508
  Receipt Date: 20081223
  Transmission Date: 20091009
  Serious: Yes (Other)
  Sender: FDA-Public Use
  Company Number: 55618

PATIENT
  Age: 73 Year
  Sex: Female

DRUGS (1)
  1. ADRIAMYCIN PFS [Suspect]
     Indication: HODGKIN'S DISEASE

REACTIONS (2)
  - ARRHYTHMIA [None]
  - TACHYCARDIA [None]
